FAERS Safety Report 19725575 (Version 1)
Quarter: 2021Q3

REPORT INFORMATION
  Report Type: Report from Study
  Country: US (occurrence: US)
  Receive Date: 20210819
  Receipt Date: 20210819
  Transmission Date: 20211014
  Serious: Yes (Other)
  Sender: FDA-Public Use
  Company Number: US-B.I. PHARMACEUTICALS,INC./RIDGEFIELD-2020-BI-055538

PATIENT
  Age: 57 Year
  Sex: Female

DRUGS (1)
  1. OFEV [Suspect]
     Active Substance: NINTEDANIB
     Indication: SYSTEMIC SCLEROSIS PULMONARY
     Dosage: OFEV 100 MG TWICE DAILY
     Route: 048
     Dates: start: 20200601, end: 20210726

REACTIONS (10)
  - Abdominal pain [Not Recovered/Not Resolved]
  - Inflammatory bowel disease [Not Recovered/Not Resolved]
  - Diarrhoea [Recovered/Resolved]
  - Nausea [Recovering/Resolving]
  - Coeliac disease [Not Recovered/Not Resolved]
  - Dehydration [Recovered/Resolved]
  - Gastrointestinal bacterial overgrowth [Recovering/Resolving]
  - Nausea [Not Recovered/Not Resolved]
  - Herpes zoster [Recovering/Resolving]
  - Vomiting [Not Recovered/Not Resolved]

NARRATIVE: CASE EVENT DATE: 20200915
